FAERS Safety Report 8376105-X (Version None)
Quarter: 2012Q2

REPORT INFORMATION
  Report Type: 
  Country: None (occurrence: None)
  Receive Date: 20120522
  Receipt Date: 20120516
  Transmission Date: 20120825
  Serious: Yes (Other)
  Sender: FDA-Public Use
  Company Number: US-BAYER-2012-014756

PATIENT
  Age: 23 Year
  Sex: Female
  Weight: 91 kg

DRUGS (8)
  1. DROSPIRENONE AND ETHINYL ESTRADIOL [Suspect]
     Indication: CONTRACEPTION
     Dosage: UNK
     Dates: start: 20090319, end: 20090401
  2. DROSPIRENONE AND ETHINYL ESTRADIOL [Suspect]
     Indication: ACNE
  3. ZOLOFT [Concomitant]
     Dosage: UNK
     Dates: start: 20081101
  4. IMITREX [Concomitant]
     Indication: MIGRAINE
     Dosage: UNK
     Dates: start: 20081101
  5. YAZ [Suspect]
     Indication: ACNE
     Dosage: UNK
     Dates: start: 20090401, end: 20090901
  6. YASMIN [Suspect]
     Indication: CONTRACEPTION
     Dosage: UNK
     Dates: start: 20080601, end: 20090301
  7. YASMIN [Suspect]
     Indication: ACNE
     Dosage: UNK
     Dates: start: 20090401, end: 20090901
  8. YAZ [Suspect]
     Indication: CONTRACEPTION
     Dosage: UNK
     Dates: start: 20080601, end: 20090301

REACTIONS (5)
  - CHEST PAIN [None]
  - ABDOMINAL PAIN [None]
  - CHOLELITHIASIS [None]
  - CHOLECYSTITIS CHRONIC [None]
  - PAIN [None]
